FAERS Safety Report 8245261-6 (Version None)
Quarter: 2012Q1

REPORT INFORMATION
  Report Type: 
  Country: None (occurrence: None)
  Receive Date: 20120329
  Receipt Date: 20120315
  Transmission Date: 20120608
  Serious: Yes (Other)
  Sender: FDA-Public Use
  Company Number: JP-ROCHE-1051276

PATIENT
  Sex: Male

DRUGS (16)
  1. VOLTAREN [Concomitant]
     Indication: RHEUMATOID ARTHRITIS
     Route: 048
  2. IRSOGLADINE MALEATE [Concomitant]
     Indication: GASTRITIS
     Route: 048
     Dates: start: 20081203, end: 20090204
  3. ONEALFA [Concomitant]
     Indication: OSTEOPOROSIS
     Route: 048
  4. ALLOPURINOL [Concomitant]
     Indication: GOUT
     Route: 048
  5. LOXONIN [Concomitant]
     Indication: RHEUMATOID ARTHRITIS
     Route: 061
     Dates: start: 20090305
  6. ACTEMRA [Suspect]
     Route: 041
     Dates: start: 20090516, end: 20091226
  7. ACTEMRA [Suspect]
     Route: 041
     Dates: start: 20100608, end: 20101005
  8. PREDNISOLONE [Concomitant]
     Route: 048
     Dates: start: 20081203
  9. SELBEX [Concomitant]
     Indication: GASTRITIS
     Route: 048
  10. PREDNISOLONE [Concomitant]
     Indication: RHEUMATOID ARTHRITIS
     Route: 048
     Dates: start: 20080917, end: 20081202
  11. ACTEMRA [Suspect]
     Indication: RHEUMATOID ARTHRITIS
     Route: 041
     Dates: start: 20081105, end: 20101005
  12. RHEUMATREX [Concomitant]
     Indication: RHEUMATOID ARTHRITIS
     Dosage: WEDNESDAY AND THURSDAY
     Route: 048
  13. FOLIC ACID [Concomitant]
     Indication: PROPHYLAXIS
     Route: 048
  14. ALENDRONATE SODIUM [Concomitant]
     Indication: OSTEOPOROSIS
     Route: 048
  15. APLACE [Concomitant]
     Indication: GASTRITIS
     Route: 048
     Dates: end: 20081203
  16. RAMOSETRON HYDROCHLORIDE [Concomitant]
     Indication: IRRITABLE BOWEL SYNDROME
     Route: 048
     Dates: start: 20081105

REACTIONS (1)
  - SURGERY [None]
